FAERS Safety Report 4699702-1 (Version None)
Quarter: 2005Q2

REPORT INFORMATION
  Report Type: 
  Country: None (occurrence: None)
  Receive Date: 20050623
  Receipt Date: 20050606
  Transmission Date: 20051028
  Serious: Yes (Death)
  Sender: FDA-Public Use
  Company Number: 2005FR-00006

PATIENT
  Age: 11 Year

DRUGS (2)
  1. ACETAMINOPHEN [Suspect]
  2. VALPROATE SODIUM [Concomitant]

REACTIONS (2)
  - HEPATIC NECROSIS [None]
  - OVERDOSE [None]
